FAERS Safety Report 18441644 (Version 1)
Quarter: 2020Q4

REPORT INFORMATION
  Report Type: Spontaneous
  Country: US (occurrence: US)
  Receive Date: 20201029
  Receipt Date: 20201029
  Transmission Date: 20210114
  Serious: Yes (Hospitalization)
  Sender: FDA-Public Use
  Company Number: US-IGSA-BIG0011842

PATIENT
  Age: 66 Year
  Sex: Female
  Weight: 75.7 kg

DRUGS (2)
  1. GAMUNEX-C [Suspect]
     Active Substance: HUMAN IMMUNOGLOBULIN G
     Indication: B-CELL APLASIA
  2. GAMUNEX-C [Suspect]
     Active Substance: HUMAN IMMUNOGLOBULIN G
     Indication: IMMUNODEFICIENCY COMMON VARIABLE
     Dosage: 10 GRAM, Q.WK.
     Route: 058
     Dates: start: 20161111

REACTIONS (2)
  - Haemoptysis [Unknown]
  - Mycobacterium avium complex infection [Unknown]

NARRATIVE: CASE EVENT DATE: 20200717
